FAERS Safety Report 9448853 (Version 1)
Quarter: 2013Q3

REPORT INFORMATION
  Report Type: Spontaneous
  Country: FR (occurrence: FR)
  Receive Date: 20130808
  Receipt Date: 20130808
  Transmission Date: 20140515
  Serious: Yes (Hospitalization, Other)
  Sender: FDA-Public Use
  Company Number: FR-ELI_LILLY_AND_COMPANY-FR201307010836

PATIENT
  Age: 57 Year
  Sex: Female

DRUGS (11)
  1. ALIMTA [Suspect]
     Dosage: 900 MG, UNK
     Route: 042
     Dates: start: 20130102, end: 20130220
  2. CISPLATINE [Suspect]
     Dosage: 135 MG, UNK
     Route: 042
     Dates: start: 20130102, end: 20130123
  3. COAPROVEL [Concomitant]
  4. IRESSA [Concomitant]
     Dosage: 250 MG, QD
     Dates: start: 20120820
  5. DOXYCYCLINE [Concomitant]
     Dosage: 100 MG, QD
     Dates: start: 20130124
  6. APREPITANT [Concomitant]
     Dosage: 80 MG, QD
     Dates: start: 20130104, end: 20130104
  7. SOLUPRED [Concomitant]
     Dosage: UNK
     Dates: start: 20130105, end: 20130125
  8. DOMPERIDONE [Concomitant]
     Dosage: UNK
     Dates: start: 20130105
  9. LEVOTHYROX [Concomitant]
     Dosage: 100 UG, QD
  10. DAFALGAN [Concomitant]
     Dosage: 1 G, UNK
  11. PREDNISOLONE [Concomitant]
     Dosage: 20 MG, UNK

REACTIONS (6)
  - Renal failure acute [Recovered/Resolved]
  - Vomiting [Recovered/Resolved]
  - Weight decreased [Unknown]
  - Nausea [Unknown]
  - Decreased appetite [Unknown]
  - Oesophagitis [Unknown]
